FAERS Safety Report 17483753 (Version 1)
Quarter: 2020Q1

REPORT INFORMATION
  Report Type: Spontaneous
  Country: TW (occurrence: TW)
  Receive Date: 20200302
  Receipt Date: 20200302
  Transmission Date: 20200409
  Serious: Yes (Other)
  Sender: FDA-Public Use
  Company Number: TW-009507513-2002TWN009409

PATIENT
  Age: 58 Year
  Sex: Male

DRUGS (5)
  1. KEYTRUDA [Suspect]
     Active Substance: PEMBROLIZUMAB
     Dosage: 3TH CYCLE, HALF DOSE
  2. KEYTRUDA [Suspect]
     Active Substance: PEMBROLIZUMAB
     Dosage: 4TH CYCLE
  3. KEYTRUDA [Suspect]
     Active Substance: PEMBROLIZUMAB
     Dosage: 2ND CYCLE
     Dates: start: 20191025
  4. KEYTRUDA [Suspect]
     Active Substance: PEMBROLIZUMAB
     Dosage: 5TH CYCLE
  5. KEYTRUDA [Suspect]
     Active Substance: PEMBROLIZUMAB
     Dosage: 1ST CYCLE
     Dates: start: 20191007

REACTIONS (7)
  - Inappropriate schedule of product administration [Unknown]
  - Urinary bladder rupture [Unknown]
  - Lichenoid keratosis [Unknown]
  - Rash [Unknown]
  - Incorrect dose administered [Unknown]
  - Urinoma [Unknown]
  - Hepatitis acute [Unknown]

NARRATIVE: CASE EVENT DATE: 201910
